FAERS Safety Report 5423510-7 (Version None)
Quarter: 2007Q3

REPORT INFORMATION
  Report Type: 
  Country: None (occurrence: None)
  Receive Date: 20070823
  Receipt Date: 20070813
  Transmission Date: 20080115
  Serious: Yes (Other)
  Sender: FDA-Public Use
  Company Number: US-JNJFOC-20070701674

PATIENT
  Sex: Male
  Weight: 64.41 kg

DRUGS (3)
  1. REMICADE [Suspect]
     Indication: IRITIS
     Route: 042
  2. PREDNISOLONE [Concomitant]
  3. PREDNISOLONE [Concomitant]
     Indication: IRITIS

REACTIONS (2)
  - OPTIC NEURITIS [None]
  - VISION BLURRED [None]
